FAERS Safety Report 13646327 (Version 1)
Quarter: 2017Q2

REPORT INFORMATION
  Report Type: Report from Study
  Country: ES (occurrence: ES)
  Receive Date: 20170613
  Receipt Date: 20170613
  Transmission Date: 20170830
  Serious: Yes (Hospitalization)
  Sender: FDA-Public Use
  Company Number: ES-TEVA-549763ISR

PATIENT
  Age: 75 Year
  Sex: Female

DRUGS (12)
  1. PREDNISONE. [Suspect]
     Active Substance: PREDNISONE
     Indication: B-CELL LYMPHOMA
     Dosage: 4.0476 MILLIGRAM DAILY; LAST DOSE PRIOR TO SAE: 14-MAR-2015
     Route: 048
     Dates: start: 20150310
  2. MYOCET [Suspect]
     Active Substance: DOXORUBICIN
  3. RITUXIMAB [Suspect]
     Active Substance: RITUXIMAB
     Indication: B-CELL LYMPHOMA
     Dosage: LAST DOSE PRIO TO SAE: 10-MAR-2017.
     Route: 042
     Dates: start: 20150310
  4. CIDINE [Concomitant]
     Indication: PROPHYLAXIS
     Dosage: ONGOING
     Route: 048
  5. ALOPURINOL [Concomitant]
     Active Substance: ALLOPURINOL
     Indication: PROPHYLAXIS
     Route: 048
     Dates: start: 20150319
  6. FUROSEMIDA [Concomitant]
     Active Substance: FUROSEMIDE
     Indication: HYPERTENSION
     Dosage: ONGOING
     Route: 048
  7. CYCLOPHOSPHAMIDE. [Suspect]
     Active Substance: CYCLOPHOSPHAMIDE
     Indication: B-CELL LYMPHOMA
     Dosage: LAST DOSE PRIOR TO SAE: 10-MAR-2015
     Route: 042
     Dates: start: 20150310
  8. ADRIAMYCIN [Suspect]
     Active Substance: DOXORUBICIN HYDROCHLORIDE
     Indication: B-CELL LYMPHOMA
     Dosage: LAST DOSE PRIOR TO SAE: 10-MAR-2015
     Route: 042
     Dates: start: 20150310
  9. ENALAPRIL [Concomitant]
     Active Substance: ENALAPRIL
     Indication: HYPERTENSION
     Dosage: ONGOING
     Route: 048
  10. BOI-K [Concomitant]
     Indication: PROPHYLAXIS
     Dosage: ONGOING
     Route: 048
  11. VINCRISTINE [Suspect]
     Active Substance: VINCRISTINE
     Indication: B-CELL LYMPHOMA
     Dosage: LAST DOSE PRIOR TO SAE: 10-MAR-2015
     Route: 042
     Dates: start: 20150310
  12. OMEPRAZOL [Concomitant]
     Active Substance: OMEPRAZOLE
     Indication: PROPHYLAXIS AGAINST GASTROINTESTINAL ULCER
     Dosage: ONGOING
     Route: 048
     Dates: start: 20150319

REACTIONS (1)
  - Febrile neutropenia [Recovered/Resolved]

NARRATIVE: CASE EVENT DATE: 20150319
